FAERS Safety Report 8005161-3 (Version None)
Quarter: 2011Q4

REPORT INFORMATION
  Report Type: 
  Country: None (occurrence: None)
  Receive Date: 20111223
  Receipt Date: 20111031
  Transmission Date: 20120403
  Serious: Yes (Hospitalization, Other)
  Sender: FDA-Public Use
  Company Number: US-NAPPMUNDI-USA_2008_0033394

PATIENT
  Sex: Female

DRUGS (3)
  1. SUBOXONE [Suspect]
  2. OXYCONTIN [Suspect]
     Indication: NECK PAIN
  3. OXYCONTIN [Suspect]
     Indication: BACK PAIN
     Dosage: UNK, SEE TEXT
     Dates: start: 20050101, end: 20070402

REACTIONS (12)
  - DELUSIONAL DISORDER, UNSPECIFIED TYPE [None]
  - EUPHORIC MOOD [None]
  - DRUG WITHDRAWAL SYNDROME [None]
  - ANHEDONIA [None]
  - DRUG DEPENDENCE [None]
  - SUICIDAL IDEATION [None]
  - PAIN [None]
  - ANXIETY [None]
  - MAJOR DEPRESSION [None]
  - PARANOIA [None]
  - OBSESSIVE-COMPULSIVE DISORDER [None]
  - DIARRHOEA [None]
